FAERS Safety Report 8547084-7 (Version None)
Quarter: 2012Q3

REPORT INFORMATION
  Report Type: 
  Country: None (occurrence: None)
  Receive Date: 20120727
  Receipt Date: 20120213
  Transmission Date: 20120928
  Serious: No
  Sender: FDA-Public Use
  Company Number: US-ASTRAZENECA-2012SE10068

PATIENT
  Age: 40 Year
  Sex: Female

DRUGS (6)
  1. CONCERTA [Concomitant]
  2. METOPROLOL TARTRATE [Concomitant]
  3. NORVASC [Concomitant]
  4. SEROQUEL [Suspect]
     Route: 048
  5. LOSARTAN POTASSIUM [Concomitant]
  6. TRILEPTAL [Concomitant]

REACTIONS (2)
  - ACTIVITIES OF DAILY LIVING IMPAIRED [None]
  - DRUG DOSE OMISSION [None]
